FAERS Safety Report 6091086-X (Version None)
Quarter: 2009Q1

REPORT INFORMATION
  Report Type: 
  Country: None (occurrence: None)
  Receive Date: 20090225
  Receipt Date: 20090213
  Transmission Date: 20090719
  Serious: Yes (Other)
  Sender: FDA-Public Use
  Company Number: CA-PFIZER INC-2009170816

PATIENT

DRUGS (1)
  1. DEPO-PROVERA [Suspect]
     Dosage: UNK

REACTIONS (5)
  - FEELING OF DESPAIR [None]
  - FIBROMYALGIA [None]
  - HOT FLUSH [None]
  - MENOPAUSE [None]
  - OLIGOMENORRHOEA [None]
